FAERS Safety Report 16973197 (Version 1)
Quarter: 2019Q4

REPORT INFORMATION
  Report Type: Spontaneous
  Country: JP (occurrence: JP)
  Receive Date: 20191030
  Receipt Date: 20191030
  Transmission Date: 20200122
  Serious: Yes (Other)
  Sender: FDA-Public Use
  Company Number: JP-TEVA-2019-JP-007874J

PATIENT
  Age: 84 Year
  Sex: Male

DRUGS (13)
  1. CELECOX [Suspect]
     Active Substance: CELECOXIB
     Dosage: 2 DOSAGE FORMS DAILY;
     Route: 065
  2. BLOPRESS TABLETS 8 [Suspect]
     Active Substance: CANDESARTAN CILEXETIL
     Indication: PRODUCT USED FOR UNKNOWN INDICATION
     Dosage: 8 MILLIGRAM DAILY;
     Route: 065
  3. GLIBENCLAMIDE TABLET 2.5MG ^TAKEDA TEVA^ [Suspect]
     Active Substance: GLYBURIDE
     Indication: PRODUCT USED FOR UNKNOWN INDICATION
     Dosage: 1 DOSAGE FORMS DAILY;
     Route: 065
  4. TRAZENTA [Suspect]
     Active Substance: LINAGLIPTIN
     Dosage: 1 DOSAGE FORMS DAILY;
     Route: 065
  5. LYRICA [Suspect]
     Active Substance: PREGABALIN
     Dosage: 25 MILLIGRAM DAILY;
     Route: 048
  6. TAKECAB [Suspect]
     Active Substance: VONOPRAZAN FUMURATE
     Dosage: 1 DOSAGE FORMS DAILY;
     Route: 065
  7. VOGLIBOSE [Suspect]
     Active Substance: VOGLIBOSE
     Dosage: .6 MILLIGRAM DAILY;
     Route: 065
  8. LIVALO [Suspect]
     Active Substance: PITAVASTATIN CALCIUM
     Dosage: 1 DOSAGE FORMS DAILY;
     Route: 065
  9. LYRICA [Suspect]
     Active Substance: PREGABALIN
     Route: 048
     Dates: start: 20181211
  10. ODYNE [Suspect]
     Active Substance: FLUTAMIDE
     Dosage: 3 DOSAGE FORMS DAILY;
     Route: 065
  11. LYRICA [Suspect]
     Active Substance: PREGABALIN
     Dosage: 150 MILLIGRAM DAILY;
     Route: 048
  12. NORVASC [Suspect]
     Active Substance: AMLODIPINE BESYLATE
     Dosage: 1 DOSAGE FORMS DAILY;
     Route: 065
  13. METFORMIN HYDROCHLORIDE:MT [Suspect]
     Active Substance: METFORMIN HYDROCHLORIDE
     Dosage: 2 DOSAGE FORMS DAILY;
     Route: 065

REACTIONS (2)
  - Visual impairment [Recovered/Resolved]
  - Cataract [Unknown]

NARRATIVE: CASE EVENT DATE: 201908
